FAERS Safety Report 4742690-X (Version None)
Quarter: 2005Q3

REPORT INFORMATION
  Report Type: 
  Country: None (occurrence: None)
  Receive Date: 20050811
  Receipt Date: 20050802
  Transmission Date: 20060218
  Serious: Yes (Death, Life-Threatening, Hospitalization)
  Sender: FDA-Public Use
  Company Number: US-JNJFOC-20050801788

PATIENT
  Sex: Male
  Weight: 163.3 kg

DRUGS (10)
  1. PEPCID AC [Suspect]
     Route: 048
  2. PEPCID AC [Suspect]
     Route: 048
  3. VICODIN [Concomitant]
  4. VICODIN [Concomitant]
  5. HIGH BLOOD PRESSURE MEDICATION [Concomitant]
  6. HIGH CHOLESTEROL MEDICATION [Concomitant]
  7. PAXIL [Concomitant]
  8. TAGAMET [Concomitant]
  9. UNSPECIFIED PILLS FOR KIDNEY [Concomitant]
  10. ASPIRIN [Concomitant]

REACTIONS (1)
  - CEREBROVASCULAR ACCIDENT [None]
